FAERS Safety Report 4299672-4 (Version None)
Quarter: 2004Q1

REPORT INFORMATION
  Report Type: 
  Country: None (occurrence: None)
  Receive Date: 20040218
  Receipt Date: 20040218
  Transmission Date: 20041129
  Serious: Yes (Hospitalization)
  Sender: FDA-Public Use
  Company Number: None

PATIENT
  Age: 80 Year
  Sex: Female
  Weight: 54.8852 kg

DRUGS (13)
  1. WARFARIN 2 MG TABLETS [Suspect]
     Indication: ATRIAL FIBRILLATION
     Dosage: 17.5 MG PER WEEK
     Dates: start: 20011001
  2. DIFLUCAN [Suspect]
     Indication: ORAL CANDIDIASIS
     Dosage: 150 MG DAILY X 3 DAYS
     Dates: start: 20040114, end: 20040116
  3. BEXTRA [Concomitant]
  4. PRILOSEC [Concomitant]
  5. MYCELEX [Concomitant]
  6. QUININE [Concomitant]
  7. ASPIRIN [Concomitant]
  8. SYNTHROID [Concomitant]
  9. DIGOXIN [Concomitant]
  10. POTASSIUM [Concomitant]
  11. PRAVACHOL [Concomitant]
  12. ATENOLOL [Concomitant]
  13. MAXIZIDE/HCTZ [Concomitant]

REACTIONS (4)
  - FAECAL OCCULT BLOOD POSITIVE [None]
  - FAECES DISCOLOURED [None]
  - INTERNATIONAL NORMALISED RATIO INCREASED [None]
  - ORAL CANDIDIASIS [None]
